FAERS Safety Report 26117143 (Version 1)
Quarter: 2025Q4

REPORT INFORMATION
  Report Type: Spontaneous
  Country: US (occurrence: None)
  Receive Date: 20251202
  Receipt Date: 20251202
  Transmission Date: 20260118
  Serious: Yes (Other)
  Sender: FDA-CTU
  Company Number: None

PATIENT
  Age: 76 Year
  Sex: Female
  Weight: 65.7 kg

DRUGS (1)
  1. KISUNLA [Suspect]
     Active Substance: DONANEMAB-AZBT
     Indication: Dementia Alzheimer^s type
     Dates: start: 20250205

REACTIONS (6)
  - Nausea [None]
  - Chills [None]
  - Chest discomfort [None]
  - Infusion related reaction [None]
  - Therapy interrupted [None]
  - Fatigue [None]

NARRATIVE: CASE EVENT DATE: 20251202
